FAERS Safety Report 9814696 (Version 1)
Quarter: 2014Q1

REPORT INFORMATION
  Report Type: Spontaneous
  Country: US (occurrence: US)
  Receive Date: 20140113
  Receipt Date: 20140113
  Transmission Date: 20141002
  Serious: Yes (Hospitalization)
  Sender: FDA-Public Use
  Company Number: US-SANOFI-AVENTIS-2013SA000605

PATIENT
  Age: 49 Year
  Sex: Female
  Weight: 81 kg

DRUGS (9)
  1. DOCETAXEL [Suspect]
     Indication: HER-2 POSITIVE BREAST CANCER
     Dosage: INFUSION
     Route: 042
  2. TRASTUZUMAB [Suspect]
     Indication: HER-2 POSITIVE BREAST CANCER
     Route: 042
  3. CARBOPLATIN [Suspect]
     Indication: HER-2 POSITIVE BREAST CANCER
     Route: 065
  4. BLINDED THERAPY [Suspect]
     Indication: HER-2 POSITIVE BREAST CANCER
     Dosage: LAST DOSE PRIOR TO SAE: 6 DEC 2012
     Route: 042
     Dates: start: 20121115
  5. METHYLPREDNISOLONE [Concomitant]
     Dosage: BEFORE CHEMOTHERAPY
     Dates: start: 20121205
  6. METHYLPREDNISOLONE [Concomitant]
     Dosage: BEFORE CHEMOTHERAPY
     Dates: start: 20121207
  7. TYLENOL [Concomitant]
     Dosage: EVERY 4 HR AS REQUIRED
     Dates: start: 20121117
  8. CLARITYN [Concomitant]
     Route: 048
     Dates: start: 20121117
  9. NEULASTA [Concomitant]
     Dates: start: 20121207

REACTIONS (2)
  - Pyrexia [Recovered/Resolved]
  - Neutropenia [Recovered/Resolved]
